FAERS Safety Report 15075383 (Version 1)
Quarter: 2018Q2

REPORT INFORMATION
  Report Type: Spontaneous
  Country: US (occurrence: US)
  Receive Date: 20180607
  Receipt Date: 20180607
  Transmission Date: 20180711
  Serious: Yes (Disabling)
  Sender: FDA-Public Use
  Company Number: None

PATIENT
  Age: 30 Year
  Sex: Female
  Weight: 58.97 kg

DRUGS (1)
  1. NEXPLANON [Suspect]
     Active Substance: ETONOGESTREL
     Indication: MENORRHAGIA
     Dates: start: 20151215, end: 20180601

REACTIONS (6)
  - Device ineffective [None]
  - Migraine [None]
  - Diarrhoea [None]
  - Nausea [None]
  - Hot flush [None]
  - Product label issue [None]

NARRATIVE: CASE EVENT DATE: 20180601
